FAERS Safety Report 19101160 (Version 6)
Quarter: 2021Q3

REPORT INFORMATION
  Report Type: Report from Study
  Country: US (occurrence: US)
  Receive Date: 20210407
  Receipt Date: 20210714
  Transmission Date: 20211014
  Serious: No
  Sender: FDA-Public Use
  Company Number: NVSC2021US076897

PATIENT
  Sex: Female

DRUGS (2)
  1. ENTRESTO [Suspect]
     Active Substance: SACUBITRIL\VALSARTAN
     Dosage: 100 MG, BID (49/51MG)
     Route: 048
     Dates: start: 20210331
  2. ENTRESTO [Suspect]
     Active Substance: SACUBITRIL\VALSARTAN
     Indication: PRODUCT USED FOR UNKNOWN INDICATION
     Dosage: 50 MG, BID (24/26MG)
     Route: 048

REACTIONS (10)
  - Swelling face [Unknown]
  - Thinking abnormal [Unknown]
  - Movement disorder [Unknown]
  - Malaise [Unknown]
  - Contusion [Unknown]
  - Dizziness [Unknown]
  - Asthenia [Unknown]
  - Fatigue [Unknown]
  - Dyspnoea [Unknown]
  - Product dose omission issue [Unknown]
